FAERS Safety Report 6602756-6 (Version None)
Quarter: 2010Q1

REPORT INFORMATION
  Report Type: 
  Country: None (occurrence: None)
  Receive Date: 20100226
  Receipt Date: 20100215
  Transmission Date: 20100710
  Serious: Yes (Other)
  Sender: FDA-Public Use
  Company Number: GB-RANBAXY-2010RR-31351

PATIENT
  Age: 64 Year
  Sex: Female
  Weight: 63 kg

DRUGS (10)
  1. PARACETAMOL [Suspect]
     Dosage: 1000 MG, UNK
     Route: 048
     Dates: start: 20100105, end: 20100106
  2. PHENYLEPHRINE HYDROCHLORIDE [Suspect]
     Dosage: 12.2 MG, UNK
     Route: 048
     Dates: start: 20100105, end: 20100106
  3. ADCAL-D3 [Concomitant]
     Dosage: 1 DF, QD
  4. ALENDRONIC ACID [Concomitant]
     Dosage: 70 MG, 1/WEEK
  5. ASPIRIN [Concomitant]
     Dosage: 75 MG, QD
  6. ATENOLOL [Concomitant]
     Dosage: 12.5 MG, QD
  7. CANDESARTAN [Concomitant]
     Dosage: 8 MG, QD
  8. FERROUS SULFATE TAB [Concomitant]
     Dosage: 200 MG, BID
  9. GLYCERYL TRINITRATE [Concomitant]
     Dosage: 1 DF, PRN
  10. SIMVASTATIN [Concomitant]
     Dosage: 20 MG, QD

REACTIONS (2)
  - AMNESIA [None]
  - CONFUSIONAL STATE [None]
